FAERS Safety Report 6861278-8 (Version None)
Quarter: 2010Q3

REPORT INFORMATION
  Report Type: 
  Country: None (occurrence: None)
  Receive Date: 20100720
  Receipt Date: 20100708
  Transmission Date: 20110219
  Serious: Yes (Other)
  Sender: FDA-Public Use
  Company Number: US-TYCO HEALTHCARE/MALLINCKRODT-T201001580

PATIENT
  Sex: Male

DRUGS (10)
  1. METHADOSE [Suspect]
     Indication: PAIN
     Dosage: 5 MG, BID
     Dates: start: 20100708
  2. AMITRIPTYLINE HYDROCHLORIDE [Concomitant]
     Indication: DEPRESSION
     Dosage: UNK
  3. AMBIEN [Concomitant]
     Indication: INSOMNIA
     Dosage: UNK
  4. TRAZODONE HYDROCHLORIDE [Concomitant]
     Indication: INSOMNIA
     Dosage: UNK
  5. KLONOPIN [Concomitant]
     Indication: ANXIETY
     Dosage: 2 MG
  6. ADDERALL 10 [Concomitant]
     Indication: ATTENTION DEFICIT/HYPERACTIVITY DISORDER
     Dosage: UNK
  7. TRAMADOL [Concomitant]
     Indication: PAIN
     Dosage: UNK
  8. TRAMADOL [Concomitant]
     Indication: ANTIINFLAMMATORY THERAPY
  9. ETODOLAC [Concomitant]
     Indication: PAIN
     Dosage: UNK
  10. ETODOLAC [Concomitant]
     Indication: ANTIINFLAMMATORY THERAPY

REACTIONS (2)
  - AFFECT LABILITY [None]
  - DEPRESSION [None]
